FAERS Safety Report 5191706-8 (Version None)
Quarter: 2006Q4

REPORT INFORMATION
  Report Type: 
  Country: None (occurrence: None)
  Receive Date: 20061219
  Receipt Date: 20061206
  Transmission Date: 20070319
  Serious: Yes (Other)
  Sender: FDA-Public Use
  Company Number: 2006151481

PATIENT
  Age: 32 Year
  Sex: Female

DRUGS (2)
  1. DEPO-PROVERA [Suspect]
     Dosage: FIRST INJECTION, INTRAMUSCULAR; SEE IMAGE
     Route: 030
     Dates: start: 19930101, end: 19930101
  2. DEPO-PROVERA [Suspect]
     Dosage: FIRST INJECTION, INTRAMUSCULAR; SEE IMAGE
     Route: 030
     Dates: start: 20050601, end: 20050601

REACTIONS (2)
  - ANKLE FRACTURE [None]
  - BONE DENSITY DECREASED [None]
